FAERS Safety Report 19171760 (Version 1)
Quarter: 2021Q2

REPORT INFORMATION
  Report Type: Spontaneous
  Country: US (occurrence: US)
  Receive Date: 20210421
  Receipt Date: 20210421
  Transmission Date: 20210717
  Serious: Yes (Life-Threatening)
  Sender: FDA-Public Use
  Company Number: None

PATIENT
  Age: 47 Year
  Sex: Female
  Weight: 77.11 kg

DRUGS (4)
  1. MULTI VITAMIN [Concomitant]
     Active Substance: VITAMINS
  2. LEUTIN [Concomitant]
  3. ESTRADIOL 1MG [Suspect]
     Active Substance: ESTRADIOL
     Indication: OOPHORECTOMY
     Dosage: ?          QUANTITY:30 DF DOSAGE FORM;?
     Route: 048
     Dates: start: 201206, end: 20200416
  4. HAIR, NAIL, SKIN VITAMIN [Concomitant]

REACTIONS (2)
  - Breast cancer [None]
  - Therapy cessation [None]

NARRATIVE: CASE EVENT DATE: 20160416
